FAERS Safety Report 25986021 (Version 1)
Quarter: 2025Q4

REPORT INFORMATION
  Report Type: Spontaneous
  Country: EU (occurrence: EU)
  Receive Date: 20251031
  Receipt Date: 20251031
  Transmission Date: 20260118
  Serious: Yes (Hospitalization, Other)
  Sender: OTSUKA
  Company Number: EU-MMM-Otsuka-PMJ7C4BZ

PATIENT
  Sex: Female

DRUGS (1)
  1. ABILIFY MAINTENA [Suspect]
     Active Substance: ARIPIPRAZOLE
     Indication: Product used for unknown indication
     Dosage: UNK (DOUBLE-INJECTION START)
     Route: 065

REACTIONS (5)
  - Adverse drug reaction [Unknown]
  - Dementia [Unknown]
  - Behaviour disorder [Unknown]
  - Visual impairment [Unknown]
  - Dysarthria [Unknown]

NARRATIVE: CASE EVENT DATE: 20250101
